FAERS Safety Report 9815901 (Version 2)
Quarter: 2014Q2

REPORT INFORMATION
  Report Type: Spontaneous
  Country: LB (occurrence: LB)
  Receive Date: 20140114
  Receipt Date: 20140407
  Transmission Date: 20141212
  Serious: Yes (Death, Hospitalization, Other)
  Sender: FDA-Public Use
  Company Number: LB-B.I. PHARMACEUTICALS,INC./RIDGEFIELD-2014-BI-01492AE

PATIENT
  Age: 76 Year
  Sex: Female

DRUGS (11)
  1. PRADAXA [Suspect]
     Indication: ATRIAL FIBRILLATION
     Dosage: 220 MG
     Route: 048
     Dates: start: 201310, end: 201312
  2. NSAIDS [Concomitant]
     Route: 065
     Dates: start: 201312
  3. NEXIUM [Concomitant]
     Route: 065
  4. ATROPINE [Concomitant]
     Route: 065
  5. PERFALGAN [Concomitant]
     Route: 065
  6. ALBUMIN [Concomitant]
     Route: 065
  7. LASIX [Concomitant]
     Route: 065
  8. AMLOR [Concomitant]
     Route: 065
  9. RYTHMONORM [Concomitant]
     Route: 065
  10. PRAXILENE [Concomitant]
     Route: 065
  11. CONCOR [Concomitant]
     Route: 065

REACTIONS (3)
  - Gastrointestinal haemorrhage [Fatal]
  - Activated partial thromboplastin time prolonged [Unknown]
  - Ulcer [Unknown]
